FAERS Safety Report 23557785 (Version 1)
Quarter: 2024Q1

REPORT INFORMATION
  Report Type: Spontaneous
  Country: US (occurrence: US)
  Receive Date: 20240223
  Receipt Date: 20240223
  Transmission Date: 20240409
  Serious: No
  Sender: FDA-Public Use
  Company Number: US-MIMS-BCONMC-2332

PATIENT

DRUGS (2)
  1. INSULIN GLARGINE [Suspect]
     Active Substance: INSULIN GLARGINE
     Indication: Type 2 diabetes mellitus
     Dosage: 15 INTERNATIONAL UNIT PER MILLILITRE, QD (AT BED TIME)
     Route: 065
     Dates: start: 20231013
  2. LISINOPRIL [Concomitant]
     Active Substance: LISINOPRIL
     Indication: Hypertension
     Dosage: UNK, UNK
     Route: 065

REACTIONS (2)
  - Device defective [Unknown]
  - Device mechanical issue [Unknown]
